FAERS Safety Report 7028400-4 (Version None)
Quarter: 2010Q4

REPORT INFORMATION
  Report Type: 
  Country: None (occurrence: None)
  Receive Date: 20101005
  Receipt Date: 20100924
  Transmission Date: 20110411
  Serious: Yes (Other)
  Sender: FDA-Public Use
  Company Number: CA-JNJFOC-20100908135

PATIENT
  Sex: Female
  Weight: 70 kg

DRUGS (7)
  1. REMICADE [Suspect]
     Indication: CROHN'S DISEASE
     Route: 042
  2. ATIVAN [Concomitant]
     Route: 048
  3. ZOLOFT [Concomitant]
     Route: 048
  4. PANTOLOC [Concomitant]
     Route: 048
  5. VITAMIN B-12 [Concomitant]
  6. IRON [Concomitant]
  7. DEPO-PROVERA [Concomitant]

REACTIONS (2)
  - PHARYNGEAL ULCERATION [None]
  - STOMATITIS [None]
